FAERS Safety Report 11661511 (Version 2)
Quarter: 2015Q4

REPORT INFORMATION
  Report Type: Spontaneous
  Country: US (occurrence: US)
  Receive Date: 20151026
  Receipt Date: 20151027
  Transmission Date: 20160304
  Serious: No
  Sender: FDA-Public Use
  Company Number: US-BAUSCH-BL-2015-020795

PATIENT
  Sex: Male

DRUGS (1)
  1. PROLENSA [Suspect]
     Active Substance: BROMFENAC SODIUM
     Indication: PRODUCT USED FOR UNKNOWN INDICATION
     Dosage: IN EACH EYE
     Route: 047
     Dates: start: 201508, end: 20150901

REACTIONS (3)
  - Off label use [Unknown]
  - No adverse event [Unknown]
  - Treatment noncompliance [Unknown]
